FAERS Safety Report 17998021 (Version 3)
Quarter: 2020Q3

REPORT INFORMATION
  Report Type: Spontaneous
  Country: JP (occurrence: JP)
  Receive Date: 20200709
  Receipt Date: 20200825
  Transmission Date: 20201103
  Serious: Yes (Death, Other)
  Sender: FDA-Public Use
  Company Number: JP-AUROBINDO-AUR-APL-2020-034570

PATIENT

DRUGS (1)
  1. FOLOTYN [Suspect]
     Active Substance: PRALATREXATE
     Indication: PRODUCT USED FOR UNKNOWN INDICATION
     Dosage: UNK
     Route: 042

REACTIONS (1)
  - Death [Fatal]
